FAERS Safety Report 4459435-3 (Version None)
Quarter: 2004Q3

REPORT INFORMATION
  Report Type: 
  Country: None (occurrence: None)
  Receive Date: 20040927
  Receipt Date: 20040913
  Transmission Date: 20050211
  Serious: Yes (Hospitalization)
  Sender: FDA-Public Use
  Company Number: FR-GLAXOSMITHKLINE-B0345629A

PATIENT
  Age: 35 Year
  Sex: Female

DRUGS (5)
  1. DEROXAT [Suspect]
     Indication: DEPRESSION
     Dosage: 20MG PER DAY
     Route: 048
     Dates: start: 20040907, end: 20040909
  2. SEROPRAM [Concomitant]
     Indication: DEPRESSION
     Route: 048
     Dates: start: 20030101, end: 20040906
  3. HEMIPRALON [Concomitant]
     Indication: MITRAL VALVE PROLAPSE
  4. FLECAINE [Concomitant]
     Indication: MITRAL VALVE PROLAPSE
     Route: 048
  5. NOCERTONE [Concomitant]
     Indication: MIGRAINE

REACTIONS (6)
  - BODY TEMPERATURE INCREASED [None]
  - DYSKINESIA [None]
  - FATIGUE [None]
  - NO REACTION ON PREVIOUS EXPOSURE TO DRUG [None]
  - PYREXIA [None]
  - SOMNOLENCE [None]
